FAERS Safety Report 4645461-8 (Version None)
Quarter: 2005Q2

REPORT INFORMATION
  Report Type: 
  Country: None (occurrence: None)
  Receive Date: 20050425
  Receipt Date: 20050413
  Transmission Date: 20051028
  Serious: Yes (Hospitalization)
  Sender: FDA-Public Use
  Company Number: 2005PK00576

PATIENT
  Age: 54 Year
  Sex: Female
  Weight: 80 kg

DRUGS (4)
  1. NOLVADEX [Suspect]
     Indication: BREAST CANCER
     Dosage: 20 MG DAILY PO
     Route: 048
     Dates: start: 20010301, end: 20030305
  2. NOLVADEX [Suspect]
     Indication: BREAST CANCER
     Dates: start: 20030901
  3. SAROTEN [Concomitant]
  4. AGNUCASTON [Concomitant]

REACTIONS (2)
  - ARTHRALGIA [None]
  - CERVICITIS [None]
